FAERS Safety Report 21380018 (Version 2)
Quarter: 2023Q1

REPORT INFORMATION
  Report Type: Report from Study
  Country: FR (occurrence: None)
  Receive Date: 20220927
  Receipt Date: 20230206
  Transmission Date: 20230417
  Serious: Yes (Hospitalization)
  Sender: FDA-Public Use
  Company Number: 2022A320638

PATIENT
  Age: 71 Year
  Sex: Male
  Weight: 87 kg

DRUGS (4)
  1. EVUSHELD [Suspect]
     Active Substance: CILGAVIMAB\TIXAGEVIMAB
     Indication: COVID-19 prophylaxis
     Dosage: 150MG/150MG1.0DF ONCE/SINGLE ADMINISTRATION
     Route: 058
     Dates: start: 20220214, end: 20220214
  2. IBRUTINIB/RITUXIMAB [Concomitant]
     Dates: start: 202003
  3. SERETIDE [Concomitant]
     Active Substance: FLUTICASONE PROPIONATE\SALMETEROL XINAFOATE
  4. VENTOLIN [Concomitant]
     Active Substance: ALBUTEROL SULFATE

REACTIONS (1)
  - Acute coronary syndrome [Recovering/Resolving]

NARRATIVE: CASE EVENT DATE: 20220328
